FAERS Safety Report 8385799-4 (Version None)
Quarter: 2012Q2

REPORT INFORMATION
  Report Type: 
  Country: None (occurrence: None)
  Receive Date: 20120523
  Receipt Date: 20120523
  Transmission Date: 20120825
  Serious: Yes (Hospitalization)
  Sender: FDA-Public Use
  Company Number: None

PATIENT
  Age: 26 Year
  Sex: Male
  Weight: 77.1115 kg

DRUGS (1)
  1. CEFAZOLIN [Suspect]
     Indication: PROPHYLAXIS
     Dosage: 1 G SINGLE DOSE IV DRIP
     Route: 041

REACTIONS (4)
  - TACHYCARDIA [None]
  - HYPOTENSION [None]
  - FLUSHING [None]
  - URTICARIA [None]
